FAERS Safety Report 24317050 (Version 1)
Quarter: 2024Q3

REPORT INFORMATION
  Report Type: Spontaneous
  Country: US (occurrence: US)
  Receive Date: 20240913
  Receipt Date: 20240913
  Transmission Date: 20241017
  Serious: No
  Sender: MERCK
  Company Number: US-009507513-2408USA009933

PATIENT
  Sex: Female

DRUGS (1)
  1. KEYTRUDA [Suspect]
     Active Substance: PEMBROLIZUMAB
     Indication: Colon cancer metastatic
     Dosage: 200 MILLIGRAM, Q3W
     Dates: start: 202203, end: 2024

REACTIONS (3)
  - Product dose omission issue [Unknown]
  - Product use issue [Unknown]
  - No adverse event [Unknown]

NARRATIVE: CASE EVENT DATE: 20240827
